FAERS Safety Report 15955192 (Version 2)
Quarter: 2020Q4

REPORT INFORMATION
  Report Type: Spontaneous
  Country: US (occurrence: US)
  Receive Date: 20190213
  Receipt Date: 20201130
  Transmission Date: 20210113
  Serious: No
  Sender: FDA-Public Use
  Company Number: US-PFIZER INC-2018445667

PATIENT
  Age: 85 Year
  Sex: Male

DRUGS (2)
  1. SERTRALINE HCL [Suspect]
     Active Substance: SERTRALINE HYDROCHLORIDE
     Indication: DEMENTIA
     Dosage: 50 MG, 1X/DAY
  2. SERTRALINE HCL [Suspect]
     Active Substance: SERTRALINE HYDROCHLORIDE
     Indication: ORTHOSTATIC HYPOTENSION
     Dosage: 75 MG, DAILY

REACTIONS (6)
  - Product use in unapproved indication [Unknown]
  - Intentional product misuse [Unknown]
  - Communication disorder [Unknown]
  - Memory impairment [Unknown]
  - Off label use [Unknown]
  - Asthenia [Unknown]
